FAERS Safety Report 18584531 (Version 6)
Quarter: 2021Q2

REPORT INFORMATION
  Report Type: Report from Study
  Country: DE (occurrence: DE)
  Receive Date: 20201207
  Receipt Date: 20210413
  Transmission Date: 20210717
  Serious: Yes (Hospitalization)
  Sender: FDA-Public Use
  Company Number: DE-ROCHE-2722756

PATIENT
  Age: 57 Year
  Sex: Female
  Weight: 55 kg

DRUGS (19)
  1. PLACEBO [Suspect]
     Active Substance: UNSPECIFIED INGREDIENT
     Indication: HER2 POSITIVE BREAST CANCER
     Dosage: DATE OF MOST RECENT DOSE OF BLINDED ATEZOLIZUMAB PRIOR TO AE/SAE ONSET 20 JAN 2020
     Route: 042
     Dates: start: 20191209
  2. PANTOPRAZOL [Concomitant]
     Active Substance: PANTOPRAZOLE SODIUM
     Dates: start: 20201125, end: 20201127
  3. STEROFUNDIN [Concomitant]
     Active Substance: CALCIUM CHLORIDE\MAGNESIUM CHLORIDE\POTASSIUM CHLORIDE\SODIUM ACETATE\SODIUM CHLORIDE
     Dates: start: 20201125, end: 20201127
  4. PERTUZUMAB. [Suspect]
     Active Substance: PERTUZUMAB
     Dosage: MAINTENANCE DOSE
     Route: 042
  5. GRANISETRON [Concomitant]
     Active Substance: GRANISETRON
     Indication: NAUSEA
     Dates: start: 20191209
  6. PARACETAMOL [Concomitant]
     Active Substance: ACETAMINOPHEN
     Indication: PAIN
     Dates: start: 20201126, end: 20201128
  7. DOXORUBICIN [Suspect]
     Active Substance: DOXORUBICIN
     Indication: HER2 POSITIVE BREAST CANCER
     Dosage: DOSE OF LAST DOXORUBICIN ADMINISTERED PRIOR TO AE ONSET 99.60 MG?DATE OF MOST RECENT DOSE OF DOXORUB
     Route: 042
     Dates: start: 20191209
  8. TRASTUZUMAB. [Suspect]
     Active Substance: TRASTUZUMAB
     Dosage: MAINTENANCE DOSE
     Route: 042
  9. DEXAMETHASON [Concomitant]
     Active Substance: DEXAMETHASONE
     Indication: NAUSEA
     Dates: start: 20191209
  10. L?THYROX [Concomitant]
     Active Substance: LEVOTHYROXINE SODIUM
     Indication: HYPOTHYROIDISM
     Dates: start: 20200316
  11. TRASTUZUMAB. [Suspect]
     Active Substance: TRASTUZUMAB
     Indication: HER2 POSITIVE BREAST CANCER
     Dosage: DOSE OF LAST TRASTUZUMAB ADMINISTERED PRIOR TO AE/SAE ONSET 318 MG?DATE OF MOST RECENT DOSE OF TRAST
     Route: 042
     Dates: start: 20200203
  12. PANTOPRAZOL 40 [Concomitant]
     Active Substance: PANTOPRAZOLE SODIUM
     Indication: ABDOMINAL PAIN UPPER
     Dates: start: 20191217
  13. ONDANSETRON [Concomitant]
     Active Substance: ONDANSETRON
     Dates: start: 20201125, end: 20201127
  14. PACLITAXEL. [Suspect]
     Active Substance: PACLITAXEL
     Indication: HER2 POSITIVE BREAST CANCER
     Dosage: DOSE OF LAST PACLITAXEL ADMINISTERED PRIOR TO AE ONSET 128 MG?DATE OF MOST RECENT DOSE OF PACLITAXEL
     Route: 042
     Dates: start: 20200203
  15. CYCLOPHOSPHAMIDE. [Suspect]
     Active Substance: CYCLOPHOSPHAMIDE
     Indication: HER2 POSITIVE BREAST CANCER
     Dosage: DOSE OF LAST CYCLOPHOSPHAMIDE ADMINISTERED PRIOR TO AE/SAE ONSET 996 MG?DATE OF MOST RECENT DOSE OF
     Route: 042
     Dates: start: 20191209
  16. PERTUZUMAB. [Suspect]
     Active Substance: PERTUZUMAB
     Indication: HER2 POSITIVE BREAST CANCER
     Dosage: DOSE OF LAST PERTUZUMAB ADMINISTERED PRIOR TO AE/SAE ONSET 420 MG?LOADING DOSE (840 MG)
     Route: 042
     Dates: start: 20200203
  17. LOPERAMID [Concomitant]
     Active Substance: LOPERAMIDE
     Indication: DIARRHOEA
     Dates: start: 20200406
  18. HYDROMORPHONE [Concomitant]
     Active Substance: HYDROMORPHONE
     Indication: PAIN
     Dates: start: 20201125, end: 20201127
  19. NEULASTA [Concomitant]
     Active Substance: PEGFILGRASTIM
     Dates: start: 20191209

REACTIONS (1)
  - Pancreatitis [Recovered/Resolved]

NARRATIVE: CASE EVENT DATE: 20201124
